FAERS Safety Report 23057088 (Version 1)
Quarter: 2023Q4

REPORT INFORMATION
  Report Type: Report from Study
  Country: CA (occurrence: CA)
  Receive Date: 20231012
  Receipt Date: 20231012
  Transmission Date: 20240110
  Serious: Yes (Hospitalization)
  Sender: FDA-Public Use
  Company Number: None

PATIENT
  Age: 89 Year
  Sex: Male

DRUGS (1)
  1. LEUPROLIDE ACETATE [Suspect]
     Active Substance: LEUPROLIDE ACETATE
     Indication: Prostate cancer
     Dosage: 1 EVERY 4 MONTHS
     Route: 030

REACTIONS (7)
  - Asthenia [Unknown]
  - Mobility decreased [Unknown]
  - Skin laceration [Unknown]
  - Fine motor skill dysfunction [Unknown]
  - Contusion [Unknown]
  - Fall [Unknown]
  - Dizziness [Unknown]
